FAERS Safety Report 14640550 (Version 3)
Quarter: 2018Q2

REPORT INFORMATION
  Report Type: Spontaneous
  Country: US (occurrence: US)
  Receive Date: 20180315
  Receipt Date: 20180503
  Transmission Date: 20180711
  Serious: No
  Sender: FDA-Public Use
  Company Number: US-GLAXOSMITHKLINE-US2018038075

PATIENT
  Age: 79 Year
  Sex: Female

DRUGS (1)
  1. ABREVA [Suspect]
     Active Substance: DOCOSANOL
     Indication: ORAL HERPES
     Dosage: UNK
     Dates: start: 20180303, end: 20180305

REACTIONS (4)
  - Incorrect dose administered [Not Recovered/Not Resolved]
  - Scab [Not Recovered/Not Resolved]
  - Lip dry [Unknown]
  - Dry skin [Not Recovered/Not Resolved]
